FAERS Safety Report 9309243 (Version 1)
Quarter: 2013Q2

REPORT INFORMATION
  Report Type: Spontaneous
  Country: US (occurrence: US)
  Receive Date: 20130525
  Receipt Date: 20130525
  Transmission Date: 20140414
  Serious: Yes (Hospitalization, Other)
  Sender: FDA-Public Use
  Company Number: US-BRISTOL-MYERS SQUIBB COMPANY-18578518

PATIENT
  Age: 51 Year
  Sex: Female
  Weight: 107.48 kg

DRUGS (8)
  1. BYDUREON 2MG VIAL + SYRINGE [Suspect]
     Indication: TYPE 2 DIABETES MELLITUS
     Route: 058
     Dates: start: 201210
  2. BYETTA PEN DISPOSABLE [Suspect]
     Indication: TYPE 2 DIABETES MELLITUS
     Route: 058
     Dates: start: 200808
  3. BYETTA PEN DISPOSABLE [Suspect]
     Indication: TYPE 2 DIABETES MELLITUS
     Route: 058
     Dates: end: 2010
  4. BYETTA PEN DISPOSABLE [Suspect]
     Indication: TYPE 2 DIABETES MELLITUS
     Route: 058
  5. METFORMIN [Concomitant]
     Indication: TYPE 2 DIABETES MELLITUS
     Route: 048
  6. VICTOZA [Concomitant]
     Indication: TYPE 2 DIABETES MELLITUS
     Route: 058
  7. COUMADIN [Concomitant]
     Indication: PULMONARY EMBOLISM
     Route: 048
     Dates: start: 201008
  8. DIURETICS [Concomitant]
     Indication: HYPERTENSION
     Route: 048

REACTIONS (18)
  - Loss of consciousness [Recovered/Resolved]
  - Anaemia [Recovered/Resolved]
  - Dehydration [Recovered/Resolved]
  - Gastroenteritis viral [Unknown]
  - Underdose [Recovered/Resolved]
  - Parosmia [Recovered/Resolved]
  - Head injury [Recovered/Resolved]
  - Vein disorder [Recovered/Resolved]
  - Stress [Unknown]
  - Mental disorder [Unknown]
  - Presyncope [Recovered/Resolved]
  - Tremor [Recovered/Resolved]
  - Marital problem [Unknown]
  - Injection site haemorrhage [Recovered/Resolved]
  - Weight decreased [Unknown]
  - Decreased appetite [Not Recovered/Not Resolved]
  - Dysgeusia [Recovered/Resolved]
  - Nausea [Recovered/Resolved]
